FAERS Safety Report 9859119 (Version 2)
Quarter: 2014Q1

REPORT INFORMATION
  Report Type: Spontaneous
  Country: IN (occurrence: None)
  Receive Date: 20140129
  Receipt Date: 20140226
  Transmission Date: 20141002
  Serious: Yes (Other)
  Sender: FDA-Public Use
  Company Number: AUR-APL-2014-00564

PATIENT
  Age: 48 Year
  Sex: Male

DRUGS (4)
  1. SEMISODIUM VALPROATE [Suspect]
     Indication: BIPOLAR DISORDER
     Dosage: (1500 MG, 1 D), UNKNOWN
  2. RISPERIDONE (RISPERIDONE) [Suspect]
     Indication: BIPOLAR DISORDER
     Dosage: (6 MG, 1 D), UNKNOWN
  3. OLANZAPINE (OLANZAPINE) [Concomitant]
  4. LITHIUM CARBONATE (LITHIUM CARBONATE) [Concomitant]

REACTIONS (2)
  - Priapism [None]
  - Painful erection [None]
